FAERS Safety Report 5088254-2 (Version None)
Quarter: 2006Q3

REPORT INFORMATION
  Report Type: 
  Country: None (occurrence: None)
  Receive Date: 20060823
  Receipt Date: 20060823
  Transmission Date: 20061208
  Serious: No
  Sender: FDA-Public Use
  Company Number: None

PATIENT
  Sex: Female
  Weight: 68.4932 kg

DRUGS (2)
  1. RITUXIMAB, 1000MG IV [Suspect]
     Indication: RHEUMATOID ARTHRITIS
     Dosage: 1000MG  1 DOSE  IV
     Route: 042
     Dates: start: 20060630
  2. PREDNISONE TAB [Concomitant]

REACTIONS (4)
  - LEUKOCYTOCLASTIC VASCULITIS [None]
  - MONARTHRITIS [None]
  - OEDEMA [None]
  - PALPABLE PURPURA [None]
